FAERS Safety Report 6736315-1 (Version None)
Quarter: 2010Q2

REPORT INFORMATION
  Report Type: 
  Country: None (occurrence: None)
  Receive Date: 20100520
  Receipt Date: 20100520
  Transmission Date: 20101027
  Serious: Yes (Other)
  Sender: FDA-Public Use
  Company Number: None

PATIENT
  Age: 37 Year
  Sex: Male
  Weight: 68.2 kg

DRUGS (2)
  1. VORICONAZOLE [Suspect]
     Indication: ASPERGILLOSIS
     Dosage: 200 MG BID PO
     Route: 048
     Dates: start: 19980901, end: 20000404
  2. VORICONAZOLE [Suspect]
     Indication: CHRONIC GRANULOMATOUS DISEASE
     Dosage: 200 MG BID PO
     Route: 048
     Dates: start: 19980901, end: 20000404

REACTIONS (1)
  - LIP NEOPLASM MALIGNANT STAGE UNSPECIFIED [None]
